FAERS Safety Report 5478223-2 (Version None)
Quarter: 2007Q4

REPORT INFORMATION
  Report Type: 
  Country: None (occurrence: None)
  Receive Date: 20071005
  Receipt Date: 20070928
  Transmission Date: 20080405
  Serious: No
  Sender: FDA-Public Use
  Company Number: DE-AVENTIS-200613176DE

PATIENT
  Age: 28 Year
  Sex: Female

DRUGS (6)
  1. ARAVA [Suspect]
     Indication: RHEUMATOID ARTHRITIS
     Route: 048
     Dates: start: 20050923, end: 20061020
  2. CELEBREX [Concomitant]
     Indication: RHEUMATOID ARTHRITIS
     Route: 048
     Dates: start: 20060823, end: 20061020
  3. PANTOZOL                           /01263202/ [Concomitant]
     Route: 048
     Dates: start: 20060823, end: 20061020
  4. PREDNISOLONE [Concomitant]
     Indication: RHEUMATOID ARTHRITIS
     Dosage: DOSE: 7.5 - 15
     Route: 048
     Dates: start: 20060330
  5. NAPROXEN [Concomitant]
     Indication: RHEUMATOID ARTHRITIS
     Route: 048
     Dates: start: 20061108
  6. COLESTYRAMIN [Concomitant]
     Route: 048
     Dates: start: 20061025, end: 20061108

REACTIONS (1)
  - DRUG EXPOSURE DURING PREGNANCY [None]
